FAERS Safety Report 5346314-2 (Version None)
Quarter: 2007Q2

REPORT INFORMATION
  Report Type: 
  Country: None (occurrence: None)
  Receive Date: 20070430
  Receipt Date: 20070205
  Transmission Date: 20071010
  Serious: No
  Sender: FDA-Public Use
  Company Number: 260713

PATIENT
  Age: 59 Year
  Sex: Female
  Weight: 99.8 kg

DRUGS (1)
  1. LEVEMIR [Suspect]
     Indication: DIABETES MELLITUS
     Dosage: SUBCUTANEOUS
     Route: 058

REACTIONS (6)
  - BLOOD GLUCOSE INCREASED [None]
  - FOOD CRAVING [None]
  - INJECTION SITE PAIN [None]
  - INSOMNIA [None]
  - OEDEMA PERIPHERAL [None]
  - WEIGHT INCREASED [None]
